FAERS Safety Report 8454853-0 (Version None)
Quarter: 2012Q2

REPORT INFORMATION
  Report Type: 
  Country: None (occurrence: None)
  Receive Date: 20120621
  Receipt Date: 20120612
  Transmission Date: 20120825
  Serious: No
  Sender: FDA-Public Use
  Company Number: JP-JNJFOC-20120604565

PATIENT
  Sex: Male

DRUGS (2)
  1. STELARA [Suspect]
     Route: 058
     Dates: start: 20120516
  2. STELARA [Suspect]
     Indication: PSORIASIS
     Route: 058
     Dates: start: 20120411, end: 20120411

REACTIONS (4)
  - SKIN EXFOLIATION [None]
  - DERMATITIS [None]
  - DEAFNESS [None]
  - RASH PAPULAR [None]
